FAERS Safety Report 11801794 (Version 1)
Quarter: 2015Q4

REPORT INFORMATION
  Report Type: Spontaneous
  Country: US (occurrence: US)
  Receive Date: 20151204
  Receipt Date: 20151204
  Transmission Date: 20160305
  Serious: Yes (Other)
  Sender: FDA-Public Use
  Company Number: US-TEVA-615101USA

PATIENT
  Age: 70 Year
  Sex: Male

DRUGS (2)
  1. CYTARABINE. [Suspect]
     Active Substance: CYTARABINE
     Route: 065
  2. IDARUBICIN [Suspect]
     Active Substance: IDARUBICIN
     Route: 065

REACTIONS (1)
  - Acute hepatic failure [Unknown]
